FAERS Safety Report 18282645 (Version 2)
Quarter: 2020Q3

REPORT INFORMATION
  Report Type: Report from Study
  Country: PK (occurrence: PK)
  Receive Date: 20200918
  Receipt Date: 20200926
  Transmission Date: 20201103
  Serious: Yes (Death, Other)
  Sender: FDA-Public Use
  Company Number: NVSC2020PK254871

PATIENT
  Age: 59 Year
  Sex: Male

DRUGS (1)
  1. EXFORGE HCT [Suspect]
     Active Substance: AMLODIPINE BESYLATE\HYDROCHLOROTHIAZIDE\VALSARTAN
     Indication: HYPERTENSION
     Dosage: 160/12.5/5 MG, 1 BD
     Route: 048
     Dates: start: 20180828

REACTIONS (9)
  - Chest discomfort [Unknown]
  - Nausea [Unknown]
  - Vomiting [Unknown]
  - Hyperhidrosis [Unknown]
  - Nasopharyngitis [Unknown]
  - Myocardial infarction [Fatal]
  - Angina pectoris [Unknown]
  - Pain [Unknown]
  - Cold sweat [Unknown]

NARRATIVE: CASE EVENT DATE: 20190206
